FAERS Safety Report 7331087-4 (Version None)
Quarter: 2011Q1

REPORT INFORMATION
  Report Type: 
  Country: None (occurrence: None)
  Receive Date: 20110304
  Receipt Date: 20110222
  Transmission Date: 20110831
  Serious: Yes (Other)
  Sender: FDA-Public Use
  Company Number: US-JNJFOC-20110207495

PATIENT
  Sex: Female

DRUGS (4)
  1. IRESSA [Suspect]
     Indication: BREAST CANCER METASTATIC
     Route: 065
  2. DOXORUBICIN HCL [Suspect]
     Indication: BREAST CANCER METASTATIC
     Route: 042
  3. DOXORUBICIN HCL [Suspect]
     Indication: NEOPLASM MALIGNANT
     Route: 042
  4. IRESSA [Suspect]
     Indication: NEOPLASM MALIGNANT
     Route: 065

REACTIONS (1)
  - LUNG DISORDER [None]
